FAERS Safety Report 17500941 (Version 2)
Quarter: 2021Q1

REPORT INFORMATION
  Report Type: Spontaneous
  Country: US (occurrence: US)
  Receive Date: 20200305
  Receipt Date: 20210108
  Transmission Date: 20210419
  Serious: No
  Sender: FDA-Public Use
  Company Number: US-MYLANLABS-2020M1021330

PATIENT
  Age: 67 Year
  Sex: Female
  Weight: 77 kg

DRUGS (3)
  1. CLONIDINE TRANSDERMAL SYSTEM [Suspect]
     Active Substance: CLONIDINE
     Dosage: 0.2 MILLIGRAM, QW
     Route: 062
     Dates: end: 20201210
  2. HYDROCORTISONE. [Concomitant]
     Active Substance: HYDROCORTISONE
     Dosage: UNK
  3. CLONIDINE TRANSDERMAL SYSTEM [Suspect]
     Active Substance: CLONIDINE
     Indication: HYPERTENSION
     Dosage: EVERY 7 DAYS
     Route: 062
     Dates: start: 20200224

REACTIONS (6)
  - Application site erythema [Recovering/Resolving]
  - Application site pruritus [Recovering/Resolving]
  - Epistaxis [Recovering/Resolving]
  - Ocular hyperaemia [Recovering/Resolving]
  - Application site rash [Recovering/Resolving]
  - Nasal discomfort [Recovering/Resolving]

NARRATIVE: CASE EVENT DATE: 2020
